FAERS Safety Report 6605109-X (Version None)
Quarter: 2010Q1

REPORT INFORMATION
  Report Type: 
  Country: None (occurrence: None)
  Receive Date: 20100226
  Receipt Date: 20100217
  Transmission Date: 20100710
  Serious: Yes (Other)
  Sender: FDA-Public Use
  Company Number: TR-ELI_LILLY_AND_COMPANY-TR201002005236

PATIENT
  Age: 40 Year
  Sex: Female

DRUGS (6)
  1. HUMULIN R [Suspect]
     Indication: GESTATIONAL DIABETES
     Dosage: 3 IU, EACH MORNING
     Route: 058
     Dates: start: 20090101, end: 20091228
  2. HUMULIN R [Suspect]
     Dosage: 3 IU, OTHER
     Route: 058
     Dates: start: 20090101, end: 20091228
  3. HUMULIN R [Suspect]
     Dosage: 3 IU, EACH EVENING
     Route: 058
     Dates: start: 20090101, end: 20091228
  4. HUMULIN N [Suspect]
     Indication: GESTATIONAL DIABETES
     Dosage: 3 U, DAILY (1/D)
     Route: 058
     Dates: start: 20090101, end: 20091228
  5. ANTIBIOTICS [Concomitant]
     Dosage: UNK, 2/D
  6. FLUCONAZOLE [Concomitant]
     Indication: FUNGAL INFECTION
     Dosage: UNK, DAILY (1/D)

REACTIONS (2)
  - ABORTION [None]
  - DRUG EXPOSURE DURING PREGNANCY [None]
